FAERS Safety Report 13176943 (Version 2)
Quarter: 2017Q1

REPORT INFORMATION
  Report Type: Report from Study
  Country: US (occurrence: US)
  Receive Date: 20170201
  Receipt Date: 20170227
  Transmission Date: 20170428
  Serious: Yes (Hospitalization)
  Sender: FDA-Public Use
  Company Number: US-VIFOR (INTERNATIONAL) INC.-VIT-2017-00783

PATIENT
  Sex: Male

DRUGS (1)
  1. VELTASSA [Suspect]
     Active Substance: PATIROMER
     Indication: PRODUCT USED FOR UNKNOWN INDICATION

REACTIONS (7)
  - Dehydration [Unknown]
  - Renal failure [Unknown]
  - Dementia [Unknown]
  - Diarrhoea [Unknown]
  - Nausea [Unknown]
  - Bladder cancer [Unknown]
  - Blood potassium increased [Unknown]
